FAERS Safety Report 24340681 (Version 7)
Quarter: 2025Q2

REPORT INFORMATION
  Report Type: Spontaneous
  Country: FR (occurrence: FR)
  Receive Date: 20240919
  Receipt Date: 20250604
  Transmission Date: 20250717
  Serious: Yes (Hospitalization, Disabling, Other)
  Sender: GLAXOSMITHKLINE
  Company Number: FR-GLAXOSMITHKLINE-FR2024EME114399

PATIENT

DRUGS (13)
  1. LAMICTAL [Suspect]
     Active Substance: LAMOTRIGINE
     Indication: Attention deficit hyperactivity disorder
     Dosage: 25 MG, QD, INCREASING EVERY FORTNIGHT
     Dates: start: 20230207, end: 20230313
  2. LAMICTAL [Suspect]
     Active Substance: LAMOTRIGINE
     Dosage: 25 MG, Q2W
     Dates: start: 20230215
  3. EBASTINE [Concomitant]
     Active Substance: EBASTINE
     Indication: Product used for unknown indication
  4. BETAMETHASONE [Concomitant]
     Active Substance: BETAMETHASONE
     Indication: Product used for unknown indication
  5. CELLCEPT [Concomitant]
     Active Substance: MYCOPHENOLATE MOFETIL
     Indication: Product used for unknown indication
     Dosage: 250 MG, BID
  6. SOLU-MEDROL [Concomitant]
     Active Substance: METHYLPREDNISOLONE SODIUM SUCCINATE
     Indication: Product used for unknown indication
  7. PROGRAF [Concomitant]
     Active Substance: TACROLIMUS
     Indication: Product used for unknown indication
     Dosage: 3 MG, BID
  8. PROGRAF [Concomitant]
     Active Substance: TACROLIMUS
  9. CERTICAN [Concomitant]
     Active Substance: EVEROLIMUS
     Indication: Product used for unknown indication
     Dosage: 0.5 MG, BID
  10. CERTICAN [Concomitant]
     Active Substance: EVEROLIMUS
     Dosage: 1.5 MG, QD
  11. KARDEGIC [Concomitant]
     Active Substance: ASPIRIN DL-LYSINE
     Indication: Product used for unknown indication
     Dosage: 75 MG, QD
  12. PRAVASTATIN [Concomitant]
     Active Substance: PRAVASTATIN
     Indication: Product used for unknown indication
     Dosage: 40 MG, QD
  13. CANNABIS SATIVA SUBSP. INDICA TOP [Concomitant]
     Active Substance: CANNABIS SATIVA SUBSP. INDICA TOP
     Indication: Product used for unknown indication

REACTIONS (69)
  - Drug reaction with eosinophilia and systemic symptoms [Unknown]
  - Hospitalisation [Unknown]
  - Hyperleukocytosis [Unknown]
  - Face oedema [Unknown]
  - Folliculitis [Unknown]
  - Toxic skin eruption [Unknown]
  - Pharyngeal erythema [Unknown]
  - Myocarditis [Unknown]
  - Cardiac ventricular thrombosis [Unknown]
  - Embolism [Unknown]
  - Cardiogenic shock [Unknown]
  - Cardiomyopathy [Not Recovered/Not Resolved]
  - Pneumonia [Unknown]
  - Myocardial infarction [Unknown]
  - Cardiac arrest [Unknown]
  - Respiratory failure [Unknown]
  - Pneumonia bacterial [Unknown]
  - Gait disturbance [Unknown]
  - Transplant rejection [Unknown]
  - Pneumothorax [Unknown]
  - Hypothyroidism [Unknown]
  - Drug-induced liver injury [Unknown]
  - Liver injury [Unknown]
  - Mediastinitis [Unknown]
  - Tracheostomy [Unknown]
  - Ischaemic stroke [Unknown]
  - Oedema [Unknown]
  - Polymerase chain reaction positive [Unknown]
  - Epstein-Barr virus infection [Unknown]
  - Human herpesvirus 6 infection [Unknown]
  - Rehabilitation therapy [Unknown]
  - Erythema [Unknown]
  - Dysuria [Unknown]
  - Vulvovaginal burning sensation [Unknown]
  - Vulvovaginal swelling [Unknown]
  - Balance disorder [Not Recovered/Not Resolved]
  - Toxicity to various agents [Unknown]
  - Odynophagia [Unknown]
  - Vomiting [Recovered/Resolved]
  - Aggression [Unknown]
  - Venous thrombosis [Unknown]
  - Extremity necrosis [Recovering/Resolving]
  - Post-traumatic stress disorder [Unknown]
  - Mixed anxiety and depressive disorder [Unknown]
  - Blood lactate dehydrogenase increased [Unknown]
  - Memory impairment [Unknown]
  - General physical health deterioration [Unknown]
  - Vasculitis [Unknown]
  - Drug eruption [Unknown]
  - Depressed mood [Recovering/Resolving]
  - Loss of personal independence in daily activities [Unknown]
  - Insomnia [Unknown]
  - Fatigue [Unknown]
  - Alopecia [Unknown]
  - Weight increased [Unknown]
  - Malnutrition [Unknown]
  - Loss of libido [Unknown]
  - Social anxiety disorder [Unknown]
  - Urticaria [Unknown]
  - Rash [Not Recovered/Not Resolved]
  - Rash pruritic [Unknown]
  - Hypokinesia [Unknown]
  - Aphonia [Unknown]
  - Decubitus ulcer [Recovered/Resolved]
  - Hepatic function abnormal [Recovering/Resolving]
  - Cervical cyst [Unknown]
  - Extra dose administered [Unknown]
  - Inappropriate schedule of product administration [Unknown]
  - Off label use [Unknown]

NARRATIVE: CASE EVENT DATE: 20230310
